FAERS Safety Report 19650104 (Version 3)
Quarter: 2021Q3

REPORT INFORMATION
  Report Type: Report from Study
  Country: CH (occurrence: CH)
  Receive Date: 20210802
  Receipt Date: 20210906
  Transmission Date: 20211014
  Serious: Yes (Life-Threatening, Hospitalization, Other)
  Sender: FDA-Public Use
  Company Number: CH-DSJP-DSU-2021-121777

PATIENT
  Sex: Female
  Weight: 103 kg

DRUGS (9)
  1. ENHERTU [Suspect]
     Active Substance: FAM-TRASTUZUMAB DERUXTECAN-NXKI
     Dosage: 555 MG, ONCE EVERY 3 WK(2ND DOSE)
     Route: 042
     Dates: start: 20210616, end: 20210616
  2. PALONOSETRON. [Concomitant]
     Active Substance: PALONOSETRON HYDROCHLORIDE
     Indication: PREMEDICATION
     Dosage: 0.25 MG, ONCE EVERY 3 WK
     Route: 042
     Dates: start: 20210526
  3. ENHERTU [Suspect]
     Active Substance: FAM-TRASTUZUMAB DERUXTECAN-NXKI
     Dosage: 555 MG, ONCE EVERY 3 WK (3RD DOSE)
     Route: 042
     Dates: start: 20210707, end: 20210707
  4. ENHERTU [Suspect]
     Active Substance: FAM-TRASTUZUMAB DERUXTECAN-NXKI
     Dosage: 555 MG, ONCE EVERY 3 WK
     Route: 042
     Dates: start: 20210526, end: 20210707
  5. ENHERTU [Suspect]
     Active Substance: FAM-TRASTUZUMAB DERUXTECAN-NXKI
     Indication: HER2 POSITIVE BREAST CANCER
     Dosage: 555 MG, ONCE EVERY 3 WK (1ST DOSE)
     Route: 042
     Dates: start: 20210526, end: 20210616
  6. AMOXICILINA + CLAVULANICO [Concomitant]
     Active Substance: AMOXICILLIN\CLAVULANIC ACID
     Indication: INFECTION
     Dosage: 875+125  MG, BID
     Route: 048
     Dates: start: 20210526
  7. APREPITANT. [Concomitant]
     Active Substance: APREPITANT
     Indication: PROPHYLAXIS
     Dosage: 125/80,MG, ONCE EVERY 3 WK
     Route: 042
     Dates: start: 20210526
  8. PEGFILGRASTIM [Concomitant]
     Active Substance: PEGFILGRASTIM
     Indication: INFECTION
     Dosage: 6 MG, ONCE EVERY 3 WK
     Route: 058
     Dates: start: 20210527
  9. METHYLPREDNISOLONE. [Concomitant]
     Active Substance: METHYLPREDNISOLONE
     Indication: PREMEDICATION
     Dosage: 125 MG, ONCE EVERY 3 WK
     Route: 042
     Dates: start: 20210526

REACTIONS (9)
  - Thrombocytopenia [Recovered/Resolved]
  - Neutropenia [Recovered/Resolved]
  - Leukopenia [Recovered/Resolved]
  - Septic shock [Recovered/Resolved]
  - Colitis [Unknown]
  - Renal failure [Recovered/Resolved]
  - Clostridium difficile colitis [Recovered/Resolved]
  - Mucosal inflammation [Unknown]
  - Bone marrow failure [Unknown]

NARRATIVE: CASE EVENT DATE: 20210628
